FAERS Safety Report 6714936-X (Version None)
Quarter: 2010Q2

REPORT INFORMATION
  Report Type: 
  Country: None (occurrence: None)
  Receive Date: 20100507
  Receipt Date: 20100426
  Transmission Date: 20101027
  Serious: Yes (Hospitalization)
  Sender: FDA-Public Use
  Company Number: JP-JNJFOC-20100407420

PATIENT
  Age: 79 Year
  Sex: Female

DRUGS (1)
  1. DUROTEP MT [Suspect]
     Indication: CANCER PAIN
     Route: 062

REACTIONS (4)
  - FEELING ABNORMAL [None]
  - PYREXIA [None]
  - URINARY RETENTION [None]
  - WRONG TECHNIQUE IN DRUG USAGE PROCESS [None]
